FAERS Safety Report 20987919 (Version 1)
Quarter: 2022Q2

REPORT INFORMATION
  Report Type: Spontaneous
  Country: US (occurrence: None)
  Receive Date: 20220620
  Receipt Date: 20220620
  Transmission Date: 20220721
  Serious: Yes (Other)
  Sender: FDA-Public Use
  Company Number: None

PATIENT
  Age: 12 Year
  Sex: Male
  Weight: 38.5 kg

DRUGS (4)
  1. ARGININE [Suspect]
     Active Substance: ARGININE
     Indication: Somatotropin stimulation test
     Dosage: FREQUENCY : ONCE?
     Route: 042
     Dates: start: 20220617, end: 20220617
  2. Clonidine 0.2 mg - one time dose [Concomitant]
     Dates: start: 20220617, end: 20220617
  3. Dextroamphetamine-amphetamine ER 30 mg 24hr capsule ER - 2 caps daily [Concomitant]
     Dates: start: 20220128
  4. Clonidine 0.1 mg daily [Concomitant]
     Dates: start: 20160510

REACTIONS (3)
  - Blood urine present [None]
  - Abdominal pain upper [None]
  - Chromaturia [None]

NARRATIVE: CASE EVENT DATE: 20220619
